FAERS Safety Report 5869086-1 (Version None)
Quarter: 2008Q3

REPORT INFORMATION
  Report Type: 
  Country: None (occurrence: None)
  Receive Date: 20080903
  Receipt Date: 20080902
  Transmission Date: 20090109
  Serious: Yes (Hospitalization)
  Sender: FDA-Public Use
  Company Number: JP-BRISTOL-MYERS SQUIBB COMPANY-14320436

PATIENT
  Age: 11 Year
  Sex: Female

DRUGS (2)
  1. AMPICILLIN [Suspect]
     Indication: MENINGITIS BACTERIAL
  2. CEFOTAXIME [Suspect]
     Indication: MENINGITIS BACTERIAL

REACTIONS (1)
  - DRUG RASH WITH EOSINOPHILIA AND SYSTEMIC SYMPTOMS [None]
